FAERS Safety Report 20852962 (Version 1)
Quarter: 2022Q2

REPORT INFORMATION
  Report Type: Spontaneous
  Country: IL (occurrence: IL)
  Receive Date: 20220520
  Receipt Date: 20220520
  Transmission Date: 20220720
  Serious: Yes (Other)
  Sender: FDA-Public Use
  Company Number: IL-NOVARTISPH-NVSC2022IL113820

PATIENT
  Sex: Female

DRUGS (2)
  1. TACROLIMUS [Suspect]
     Active Substance: TACROLIMUS
     Indication: Product used for unknown indication
     Dosage: UNK
     Route: 065
  2. RUXOLITINIB [Suspect]
     Active Substance: RUXOLITINIB
     Indication: Product used for unknown indication
     Dosage: 1 DOSAGE FORM (10MG X2 (5MG TABS ONLY)
     Route: 065
     Dates: start: 20220315

REACTIONS (7)
  - Chronic graft versus host disease [Unknown]
  - Chronic graft versus host disease in skin [Unknown]
  - Chronic graft versus host disease oral [Unknown]
  - Chronic graft versus host disease in liver [Unknown]
  - Chronic graft versus host disease in eye [Unknown]
  - Therapy partial responder [Unknown]
  - Drug ineffective [Unknown]
